FAERS Safety Report 12700840 (Version 1)
Quarter: 2016Q3

REPORT INFORMATION
  Report Type: Spontaneous
  Country: US (occurrence: None)
  Receive Date: 20160830
  Receipt Date: 20160830
  Transmission Date: 20161109
  Serious: Yes (Life-Threatening, Hospitalization, Disabling, Other)
  Sender: FDA-Public Use
  Company Number: None

PATIENT
  Age: 70 Year
  Sex: Female

DRUGS (13)
  1. FUROSEMIDE. [Concomitant]
     Active Substance: FUROSEMIDE
  2. NITROGLYCERIN. [Concomitant]
     Active Substance: NITROGLYCERIN
  3. METOPROLOL. [Concomitant]
     Active Substance: METOPROLOL
  4. ALBUTEROL SULFATE AND IPRATROPIUM BROMIDE RITE DOSE PHARMACEUTICALS [Suspect]
     Active Substance: ALBUTEROL SULFATE\IPRATROPIUM BROMIDE
     Indication: LUNG DISORDER
     Dosage: 1 VIAL EVERY 6 HRS. INHALED/NEBULIZER
     Route: 055
     Dates: start: 20160225, end: 20160225
  5. ALBUTEROL SULFATE AND IPRATROPIUM BROMIDE RITE DOSE PHARMACEUTICALS [Suspect]
     Active Substance: ALBUTEROL SULFATE\IPRATROPIUM BROMIDE
     Indication: CARDIAC DISORDER
     Dosage: 1 VIAL EVERY 6 HRS. INHALED/NEBULIZER
     Route: 055
     Dates: start: 20160225, end: 20160225
  6. CLOPIDOGREL [Concomitant]
     Active Substance: CLOPIDOGREL BISULFATE
  7. FAMOTIDINE. [Concomitant]
     Active Substance: FAMOTIDINE
  8. SYMBICORT [Concomitant]
     Active Substance: BUDESONIDE\FORMOTEROL FUMARATE DIHYDRATE
  9. ATORVASTATIN [Concomitant]
     Active Substance: ATORVASTATIN
  10. ISOSORBIDE. [Concomitant]
     Active Substance: ISOSORBIDE
  11. RANOLAZINE [Concomitant]
     Active Substance: RANOLAZINE
  12. ASPIRIN. [Concomitant]
     Active Substance: ASPIRIN
  13. HYDRALAZINE [Concomitant]
     Active Substance: HYDRALAZINE HYDROCHLORIDE

REACTIONS (7)
  - Condition aggravated [None]
  - Peripheral swelling [None]
  - Feeding disorder [None]
  - Pain in extremity [None]
  - Abdominal pain upper [None]
  - Weight decreased [None]
  - Dyspnoea [None]

NARRATIVE: CASE EVENT DATE: 20160215
